FAERS Safety Report 5497645-7 (Version None)
Quarter: 2007Q4

REPORT INFORMATION
  Report Type: 
  Country: None (occurrence: None)
  Receive Date: 20071023
  Receipt Date: 20071008
  Transmission Date: 20080405
  Serious: Yes (Other)
  Sender: FDA-Public Use
  Company Number: S07-FRA-05526-01

PATIENT
  Age: 75 Year
  Sex: Male

DRUGS (5)
  1. SEROPLEX (ESCITALOPRAM) [Suspect]
     Dosage: 20 MG QD PO
     Route: 048
  2. SEROPLEX (ESCITALOPRAM) [Suspect]
     Dosage: 10 MG QD PO
     Route: 048
  3. SINEMET [Concomitant]
  4. DEPAKOTE [Concomitant]
  5. ANALGESIC DRUGS (NOS) [Concomitant]

REACTIONS (1)
  - CHOREA [None]
